FAERS Safety Report 24002501 (Version 1)
Quarter: 2024Q2

REPORT INFORMATION
  Report Type: Spontaneous
  Country: US (occurrence: US)
  Receive Date: 20240623
  Receipt Date: 20240623
  Transmission Date: 20240715
  Serious: No
  Sender: FDA-Public Use
  Company Number: US-VIIV HEALTHCARE LIMITED-US2024071913

PATIENT
  Age: 31 Year
  Sex: Male

DRUGS (2)
  1. RILPIVIRINE [Suspect]
     Active Substance: RILPIVIRINE
     Indication: HIV infection
     Dosage: UNK 600MG/3ML
     Route: 065
  2. CABOTEGRAVIR [Suspect]
     Active Substance: CABOTEGRAVIR
     Indication: HIV infection
     Dosage: UNK 600MG/3ML
     Route: 065

REACTIONS (1)
  - CD4 lymphocytes decreased [Not Recovered/Not Resolved]

NARRATIVE: CASE EVENT DATE: 20240402
